FAERS Safety Report 7080142-5 (Version None)
Quarter: 2010Q4

REPORT INFORMATION
  Report Type: 
  Country: None (occurrence: None)
  Receive Date: 20101102
  Receipt Date: 20101020
  Transmission Date: 20110411
  Serious: Yes (Other)
  Sender: FDA-Public Use
  Company Number: JP-RB-017020-10

PATIENT

DRUGS (1)
  1. LEPETAN [Suspect]
     Dosage: DOSING DETAILS UNKNOWN
     Route: 065

REACTIONS (1)
  - ILEUS PARALYTIC [None]
